FAERS Safety Report 16274755 (Version 1)
Quarter: 2019Q2

REPORT INFORMATION
  Report Type: Spontaneous
  Country: US (occurrence: US)
  Receive Date: 20190401
  Receipt Date: 20190401
  Transmission Date: 20190711
  Serious: Yes (Other)
  Sender: FDA-Public Use
  Company Number: None

PATIENT
  Age: 53 Year
  Sex: Male
  Weight: 86.18 kg

DRUGS (2)
  1. DIAZEPAM. [Suspect]
     Active Substance: DIAZEPAM
     Indication: SLEEP DISORDER
     Dosage: ?          QUANTITY:5 MG MILLIGRAM(S);?
     Route: 048
     Dates: start: 20140522, end: 20180710
  2. PERPHAZINE [Concomitant]

REACTIONS (7)
  - Eye colour change [None]
  - Malaise [None]
  - Chills [None]
  - Tremor [None]
  - Alopecia [None]
  - Fatigue [None]
  - Madarosis [None]

NARRATIVE: CASE EVENT DATE: 20180710
